FAERS Safety Report 8564770-3 (Version None)
Quarter: 2012Q3

REPORT INFORMATION
  Report Type: 
  Country: None (occurrence: None)
  Receive Date: 20120803
  Receipt Date: 20120726
  Transmission Date: 20120928
  Serious: Yes (Hospitalization)
  Sender: FDA-Public Use
  Company Number: US-BAYER-2012-051350

PATIENT
  Age: 28 Year
  Sex: Female

DRUGS (4)
  1. YASMIN [Suspect]
  2. ZOLOFT [Concomitant]
  3. DROSPIRENONE AND ETHINYL ESTRADIOL [Suspect]
  4. SERTRALINE HYDROCHLORIDE [Concomitant]
     Dosage: 50 MG, UNK
     Dates: start: 20110113, end: 20120203

REACTIONS (2)
  - PULMONARY EMBOLISM [None]
  - DEEP VEIN THROMBOSIS [None]
